FAERS Safety Report 6883547-8 (Version None)
Quarter: 2010Q3

REPORT INFORMATION
  Report Type: 
  Country: None (occurrence: None)
  Receive Date: 20100729
  Receipt Date: 20100719
  Transmission Date: 20110219
  Serious: Yes (Death, Life-Threatening, Disabling, Other)
  Sender: FDA-Public Use
  Company Number: US-BAYER-200836996NA

PATIENT
  Age: 67 Year
  Sex: Male
  Weight: 70 kg

DRUGS (21)
  1. MAGNEVIST [Suspect]
     Indication: NUCLEAR MAGNETIC RESONANCE IMAGING
     Dosage: MAGNEVIST DOSE ILLEGIBLE/60 ML VISIPAQUE
     Dates: start: 20030326, end: 20030326
  2. OPTIMARK [Suspect]
     Indication: NUCLEAR MAGNETIC RESONANCE IMAGING
     Route: 042
     Dates: start: 20051019, end: 20051019
  3. UNSPECIFIED GADOLINIUM BASED CONTRAST AGENT [Suspect]
     Indication: NUCLEAR MAGNETIC RESONANCE IMAGING
     Route: 042
     Dates: start: 20050829, end: 20050829
  4. UNSPECIFIED GADOLINIUM BASED CONTRAST AGENT [Suspect]
     Dates: start: 20021224, end: 20021224
  5. VISIPAQUE [Concomitant]
     Dosage: MAGNEVIST DOSE ILLEGIBLE/60 ML VISIPAQUE
     Dates: start: 20030326, end: 20030326
  6. HYDRALAZINE HCL [Concomitant]
  7. METAPROLOL [Concomitant]
  8. FUROSEMIDE [Concomitant]
  9. FERROUS SULFATE TAB [Concomitant]
  10. TRICOR [Concomitant]
  11. CLONIDINE [Concomitant]
  12. NORVASC [Concomitant]
  13. LANOXIN [Concomitant]
  14. CATAPRES-TTS-2 [Concomitant]
  15. RENAGEL [Concomitant]
     Dosage: TOTAL DAILY DOSE: 2400 MG
     Dates: start: 20050324
  16. EPOGEN [Concomitant]
  17. ENALAPRIL [Concomitant]
  18. LISINOPRIL [Concomitant]
  19. QUININE SULFATE [Concomitant]
  20. INDOCIN [Concomitant]
  21. NIFEREX FORTE [Concomitant]

REACTIONS (19)
  - EMOTIONAL DISTRESS [None]
  - ERYTHEMA [None]
  - FIBROSIS [None]
  - GENERAL PHYSICAL HEALTH DETERIORATION [None]
  - JOINT RANGE OF MOTION DECREASED [None]
  - MOBILITY DECREASED [None]
  - MUSCULOSKELETAL STIFFNESS [None]
  - NEPHROGENIC SYSTEMIC FIBROSIS [None]
  - OEDEMA PERIPHERAL [None]
  - PAIN IN EXTREMITY [None]
  - PRURITUS [None]
  - RASH PRURITIC [None]
  - SCAR [None]
  - SKIN FIBROSIS [None]
  - SKIN HYPERTROPHY [None]
  - SKIN INDURATION [None]
  - SKIN PLAQUE [None]
  - SKIN TIGHTNESS [None]
  - SKIN ULCER [None]
